FAERS Safety Report 6207297-6 (Version None)
Quarter: 2009Q2

REPORT INFORMATION
  Report Type: 
  Country: None (occurrence: None)
  Receive Date: 20090527
  Receipt Date: 20090527
  Transmission Date: 20091009
  Serious: Yes (Other)
  Sender: FDA-Public Use
  Company Number: None

PATIENT
  Age: 40 Year
  Sex: Female

DRUGS (1)
  1. EX-LAX REG STR LAX PILLS SENNA (NCH) (SENNA GLYCOSIDES (CA SALTS OF PU [Suspect]
     Indication: CONSTIPATION
     Dosage: ORAL; 75 MG, ONCE/SINGLE, ORAL
     Route: 048
     Dates: start: 20080101, end: 20090104

REACTIONS (5)
  - ABDOMINAL DISTENSION [None]
  - ANAEMIA [None]
  - DEPENDENCE [None]
  - INTENTIONAL DRUG MISUSE [None]
  - MALAISE [None]
